FAERS Safety Report 5176487-6 (Version None)
Quarter: 2006Q4

REPORT INFORMATION
  Report Type: 
  Country: None (occurrence: None)
  Receive Date: 20061207
  Receipt Date: 20061124
  Transmission Date: 20070319
  Serious: Yes (Hospitalization)
  Sender: FDA-Public Use
  Company Number: A-CH2006-13527

PATIENT
  Age: 62 Year
  Sex: Female
  Weight: 41.9 kg

DRUGS (3)
  1. TRACLEER [Suspect]
     Indication: PULMONARY HYPERTENSION
     Dosage: 125 MG, BID, ORAL, SEE IMAGE
     Route: 048
     Dates: start: 20020101
  2. MARCUMAR [Concomitant]
  3. LASIX [Concomitant]

REACTIONS (18)
  - ACUTE PRERENAL FAILURE [None]
  - ALANINE AMINOTRANSFERASE INCREASED [None]
  - ASCITES [None]
  - ASPARTATE AMINOTRANSFERASE INCREASED [None]
  - BLOOD BILIRUBIN INCREASED [None]
  - EPILEPSY [None]
  - FALL [None]
  - FLUID IMBALANCE [None]
  - FLUID RETENTION [None]
  - GAMMA-GLUTAMYLTRANSFERASE INCREASED [None]
  - GRAND MAL CONVULSION [None]
  - HEPATIC CONGESTION [None]
  - HEPATOMEGALY [None]
  - HYPOTENSION [None]
  - IRON DEFICIENCY ANAEMIA [None]
  - OEDEMA [None]
  - PLEURAL EFFUSION [None]
  - SHOCK [None]
